FAERS Safety Report 4887687-4 (Version None)
Quarter: 2006Q1

REPORT INFORMATION
  Report Type: 
  Country: None (occurrence: None)
  Receive Date: 20060119
  Receipt Date: 20060119
  Transmission Date: 20060701
  Serious: Yes (Hospitalization)
  Sender: FDA-Public Use
  Company Number: None

PATIENT
  Age: 56 Year
  Sex: Male
  Weight: 81.6475 kg

DRUGS (3)
  1. CYCLOBENZAPRINE PO [Suspect]
     Route: 048
  2. DIAZEPAM [Suspect]
     Route: 048
  3. METHADONE 20 MG QID PRN PAIN [Suspect]

REACTIONS (5)
  - AGGRESSION [None]
  - DRUG ABUSER [None]
  - MENTAL STATUS CHANGES [None]
  - MULTIPLE DRUG OVERDOSE [None]
  - SELF-MEDICATION [None]
